FAERS Safety Report 18752787 (Version 1)
Quarter: 2021Q1

REPORT INFORMATION
  Report Type: Spontaneous
  Country: US (occurrence: US)
  Receive Date: 20210118
  Receipt Date: 20210118
  Transmission Date: 20210419
  Serious: Yes (Hospitalization, Other)
  Sender: FDA-Public Use
  Company Number: US-009507513-2101USA007518

PATIENT
  Sex: Female

DRUGS (3)
  1. DECADRON [Suspect]
     Active Substance: DEXAMETHASONE
     Dosage: UNK, TID
  2. TUCATINIB [Concomitant]
     Active Substance: TUCATINIB
     Indication: BREAST CANCER FEMALE
     Dosage: UNK, BID
  3. TUCATINIB [Concomitant]
     Active Substance: TUCATINIB
     Dosage: UNK, BID

REACTIONS (4)
  - Hospitalisation [Unknown]
  - Adverse event [Unknown]
  - Blood potassium decreased [Unknown]
  - Malignant neoplasm progression [Unknown]
